FAERS Safety Report 6003622-X (Version None)
Quarter: 2008Q4

REPORT INFORMATION
  Report Type: 
  Country: None (occurrence: None)
  Receive Date: 20081216
  Receipt Date: 20081204
  Transmission Date: 20090506
  Serious: Yes (Other)
  Sender: FDA-Public Use
  Company Number: JP-PFIZER INC-2008152849

PATIENT

DRUGS (1)
  1. SULPERAZON [Suspect]
     Indication: SURGERY
     Dosage: 1 G, UNK
     Route: 017
     Dates: start: 20081126, end: 20081203

REACTIONS (1)
  - ANAPHYLACTIC SHOCK [None]
